FAERS Safety Report 4848846-X (Version None)
Quarter: 2005Q4

REPORT INFORMATION
  Report Type: 
  Country: None (occurrence: None)
  Receive Date: 20051121
  Receipt Date: 20050816
  Transmission Date: 20060501
  Serious: Yes (Hospitalization)
  Sender: FDA-Public Use
  Company Number: 05P-163-0308371-00

PATIENT
  Age: 41 Year
  Sex: Male

DRUGS (1)
  1. TRICOR [Suspect]
     Dosage: PER ORAL
     Route: 048

REACTIONS (1)
  - PANCREATITIS [None]
